FAERS Safety Report 7888665-3 (Version None)
Quarter: 2011Q4

REPORT INFORMATION
  Report Type: 
  Country: None (occurrence: None)
  Receive Date: 20111101
  Receipt Date: 20111019
  Transmission Date: 20120403
  Serious: Yes (Other)
  Sender: FDA-Public Use
  Company Number: 2011SP049560

PATIENT
  Age: 9 Year
  Sex: Male
  Weight: 40 kg

DRUGS (2)
  1. DESLORATADINE [Suspect]
     Indication: RHINITIS ALLERGIC
     Dosage: 10 ML; QD;PO      7.5 ML; QD; PO
     Route: 048
     Dates: start: 20110920
  2. DESLORATADINE [Suspect]
     Indication: RHINITIS ALLERGIC
     Dosage: 10 ML; QD;PO      7.5 ML; QD; PO
     Route: 048
     Dates: end: 20110930

REACTIONS (8)
  - IRRITABILITY [None]
  - INSOMNIA [None]
  - AGGRESSION [None]
  - INTENTIONAL SELF-INJURY [None]
  - LOGORRHOEA [None]
  - PSYCHOMOTOR HYPERACTIVITY [None]
  - ABNORMAL BEHAVIOUR [None]
  - ANGER [None]
